FAERS Safety Report 8000764-4 (Version None)
Quarter: 2011Q4

REPORT INFORMATION
  Report Type: 
  Country: None (occurrence: None)
  Receive Date: 20111222
  Receipt Date: 20111214
  Transmission Date: 20120403
  Serious: Yes (Other)
  Sender: FDA-Public Use
  Company Number: US-BAYER-2011-036244

PATIENT
  Age: 29 Year
  Sex: Female
  Weight: 109.75 kg

DRUGS (16)
  1. YASMIN [Suspect]
     Indication: MENSTRUATION IRREGULAR
  2. DROSPIRENONE AND ETHINYL ESTRADIOL [Suspect]
     Indication: CONTRACEPTION
     Dosage: UNK
     Dates: start: 20080701, end: 20090505
  3. DROSPIRENONE AND ETHINYL ESTRADIOL [Suspect]
     Indication: MENSTRUATION IRREGULAR
  4. SYNTHROID [Concomitant]
     Indication: HYPOTHYROIDISM
     Dosage: 75 MCG/24HR, UNK
     Route: 048
     Dates: start: 20040507
  5. DIAZEPAM [Concomitant]
     Dosage: 5 MG, UNK
     Route: 048
     Dates: start: 20090412
  6. HYDROXYZINE HCL [Concomitant]
     Dosage: 50 MG, UNK
     Route: 048
     Dates: start: 20090412
  7. PREDNISONE [Concomitant]
     Dosage: 10 MG, UNK
     Route: 048
     Dates: start: 20031016, end: 20090412
  8. ANTITHROMBOTIC AGENTS [Concomitant]
  9. YASMIN [Suspect]
     Indication: HIRSUTISM
  10. YAZ [Suspect]
     Indication: CONTRACEPTION
     Dosage: UNK
     Dates: start: 20071101, end: 20071201
  11. DOXYCYCLINE [Concomitant]
     Dosage: 100 MG, UNK
     Route: 048
     Dates: start: 20080528, end: 20090504
  12. ZYRTEC [Concomitant]
     Dosage: UNK
     Route: 048
     Dates: start: 20090101
  13. YAZ [Suspect]
     Indication: MENSTRUATION IRREGULAR
  14. YAZ [Suspect]
     Indication: HIRSUTISM
  15. YASMIN [Suspect]
     Indication: CONTRACEPTION
     Dosage: UNK
     Dates: start: 20050709, end: 20070712
  16. DROSPIRENONE AND ETHINYL ESTRADIOL [Suspect]
     Indication: HIRSUTISM

REACTIONS (8)
  - DEEP VEIN THROMBOSIS [None]
  - NAUSEA [None]
  - LOSS OF CONSCIOUSNESS [None]
  - VISION BLURRED [None]
  - OEDEMA PERIPHERAL [None]
  - PAIN IN EXTREMITY [None]
  - HYPOACUSIS [None]
  - EMOTIONAL DISTRESS [None]
